FAERS Safety Report 5090347-0 (Version None)
Quarter: 2006Q3

REPORT INFORMATION
  Report Type: 
  Country: None (occurrence: None)
  Receive Date: 20060828
  Receipt Date: 20060725
  Transmission Date: 20061208
  Serious: No
  Sender: FDA-Public Use
  Company Number: US-GLAXOSMITHKLINE-A0613520A

PATIENT
  Age: 64 Year
  Sex: Male

DRUGS (4)
  1. WELLBUTRIN XL [Suspect]
     Indication: DEPRESSION
     Dosage: 150MG PER DAY
     Route: 048
     Dates: start: 20060708
  2. ZOCOR [Concomitant]
  3. ASPIRIN [Concomitant]
  4. VITAMINS [Concomitant]

REACTIONS (3)
  - CONSTIPATION [None]
  - FEELING ABNORMAL [None]
  - INSOMNIA [None]
